FAERS Safety Report 7513423-9 (Version None)
Quarter: 2011Q2

REPORT INFORMATION
  Report Type: 
  Country: None (occurrence: None)
  Receive Date: 20110531
  Receipt Date: 20110420
  Transmission Date: 20111010
  Serious: Yes (Other)
  Sender: FDA-Public Use
  Company Number: GB-UCBSA-031709

PATIENT
  Age: 48 Year
  Sex: Male

DRUGS (2)
  1. LACOSAMIDE [Suspect]
     Dosage: DAILY DOSE : 400 (UNITS UNSPECIFIED)
  2. CARBAMAZEPINE [Concomitant]
     Dosage: DAILY DOSE : 2200 (UNITS UNSPECIFIED)

REACTIONS (4)
  - POISONING [None]
  - EPILEPSY [None]
  - ATAXIA [None]
  - DRUG INEFFECTIVE [None]
